FAERS Safety Report 5593051-5 (Version None)
Quarter: 2008Q1

REPORT INFORMATION
  Report Type: 
  Country: None (occurrence: None)
  Receive Date: 20080116
  Receipt Date: 20080107
  Transmission Date: 20080703
  Serious: Yes (Other)
  Sender: FDA-Public Use
  Company Number: NO-JNJFOC-20071105788

PATIENT
  Age: 36 Year
  Sex: Male

DRUGS (7)
  1. RISPERDAL CONSTA [Suspect]
     Indication: SCHIZOPHRENIA
     Route: 030
  2. TRAMADOL HYDROCHLORIDE [Concomitant]
  3. ZOPIKLONE [Concomitant]
  4. ALBYL-E [Concomitant]
  5. LEVOPROMAZINE [Concomitant]
  6. ASPIRIN [Concomitant]
  7. BIPERIDINE [Concomitant]

REACTIONS (3)
  - CEREBRAL INFARCTION [None]
  - HEMIPARESIS [None]
  - SPEECH DISORDER [None]
